FAERS Safety Report 6104053-4 (Version None)
Quarter: 2009Q1

REPORT INFORMATION
  Report Type: 
  Country: None (occurrence: None)
  Receive Date: 20090227
  Receipt Date: 20080102
  Transmission Date: 20090719
  Serious: Yes (Hospitalization)
  Sender: FDA-Public Use
  Company Number: 533389

PATIENT
  Age: 17 Year
  Sex: Male

DRUGS (1)
  1. ACCUTANE [Suspect]
     Indication: ACNE
     Dosage: 60 MG DAILY 1 PER DAY
     Dates: start: 19951001

REACTIONS (7)
  - BLADDER DISORDER [None]
  - DEPRESSION [None]
  - DERMATITIS [None]
  - DERMATITIS ALLERGIC [None]
  - DRY SKIN [None]
  - URINARY TRACT INFECTION [None]
  - XEROSIS [None]
